FAERS Safety Report 16921732 (Version 3)
Quarter: 2019Q4

REPORT INFORMATION
  Report Type: Report from Study
  Country: MX (occurrence: MX)
  Receive Date: 20191015
  Receipt Date: 20191120
  Transmission Date: 20200122
  Serious: Yes (Death)
  Sender: FDA-Public Use
  Company Number: NVSC2019MX002731

PATIENT
  Sex: Male
  Weight: 81 kg

DRUGS (4)
  1. EXELON PATCH [Suspect]
     Active Substance: RIVASTIGMINE
     Indication: AMNESIA
     Dosage: 4.6 MG, QD PATCH 5 (CM2)
     Route: 003
     Dates: end: 2015
  2. EXELON PATCH [Suspect]
     Active Substance: RIVASTIGMINE
     Dosage: 9.5 MG, QD PATCH 10 (CM2)
     Route: 003
     Dates: start: 2015, end: 20150830
  3. NEUPAX [Concomitant]
     Indication: SLEEP DISORDER
     Dosage: 0.5 DF, QD (STARTED A LONG TIME AND STOPPED TWO MONTHS PRIOR TO DEATH)
     Route: 065
  4. NOOTROPIL [Concomitant]
     Active Substance: PIRACETAM
     Indication: CEREBRAL DISORDER
     Dosage: 800 MG, QD (STARTED A LONG TIME AGO)
     Route: 048
     Dates: end: 20190830

REACTIONS (4)
  - Pneumonia [Fatal]
  - Productive cough [Unknown]
  - Cartilage injury [Unknown]
  - Myocardial infarction [Fatal]
